FAERS Safety Report 19185716 (Version 2)
Quarter: 2021Q2

REPORT INFORMATION
  Report Type: Spontaneous
  Country: TR (occurrence: TR)
  Receive Date: 20210427
  Receipt Date: 20210527
  Transmission Date: 20210717
  Serious: Yes (Other)
  Sender: FDA-Public Use
  Company Number: TR-PFIZER INC-2021437775

PATIENT
  Age: 25 Year
  Sex: Female

DRUGS (5)
  1. EFEXOR XR [Suspect]
     Active Substance: VENLAFAXINE HYDROCHLORIDE
     Dosage: 37.5 MG LAST FOR MONTHS USING
     Dates: end: 20210516
  2. EFEXOR XR [Suspect]
     Active Substance: VENLAFAXINE HYDROCHLORIDE
     Indication: GENERALISED ANXIETY DISORDER
     Dosage: 75 MG
  3. EFEXOR XR [Suspect]
     Active Substance: VENLAFAXINE HYDROCHLORIDE
     Indication: ANXIETY
     Dosage: 75 MG FOR A YEAR
  4. EFEXOR XR [Suspect]
     Active Substance: VENLAFAXINE HYDROCHLORIDE
     Indication: PANIC ATTACK
     Dosage: 150 MG
  5. EFEXOR XR [Suspect]
     Active Substance: VENLAFAXINE HYDROCHLORIDE
     Indication: DEPRESSION
     Dosage: 37.5 MG USED FOR A WEEK

REACTIONS (23)
  - Diarrhoea [Recovered/Resolved]
  - Hypersomnia [Recovering/Resolving]
  - Drug ineffective [Recovering/Resolving]
  - Epinephrine increased [Recovering/Resolving]
  - Balance disorder [Unknown]
  - Dyspnoea [Recovering/Resolving]
  - Intentional dose omission [Recovering/Resolving]
  - Electric shock sensation [Unknown]
  - Suicidal ideation [Recovering/Resolving]
  - Somnolence [Recovering/Resolving]
  - Major depression [Unknown]
  - Palpitations [Recovering/Resolving]
  - Dizziness [Unknown]
  - Abdominal tenderness [Recovering/Resolving]
  - Panic attack [Unknown]
  - Disturbance in attention [Unknown]
  - Weight decreased [Recovering/Resolving]
  - Muscular weakness [Recovering/Resolving]
  - Anxiety [Recovering/Resolving]
  - Amnesia [Recovering/Resolving]
  - Eating disorder [Recovering/Resolving]
  - Abdominal discomfort [Recovering/Resolving]
  - Feeling abnormal [Recovering/Resolving]

NARRATIVE: CASE EVENT DATE: 20210518
